FAERS Safety Report 8817020 (Version 1)
Quarter: 2012Q4

REPORT INFORMATION
  Report Type: Spontaneous
  Country: US (occurrence: None)
  Receive Date: 20121003
  Receipt Date: 20121003
  Transmission Date: 20130627
  Serious: Yes (Disabling, Other)
  Sender: FDA-Public Use
  Company Number: None

PATIENT
  Age: 65 Year
  Sex: Female
  Weight: 83.92 kg

DRUGS (1)
  1. TRAMADOL [Suspect]
     Indication: PAIN MANAGEMENT
     Route: 048
     Dates: start: 20100101, end: 20120903

REACTIONS (12)
  - Withdrawal syndrome [None]
  - Agitation [None]
  - Abnormal dreams [None]
  - Insomnia [None]
  - Feeling cold [None]
  - Apparent death [None]
  - Depression [None]
  - Malaise [None]
  - Lethargy [None]
  - Diarrhoea [None]
  - Pyrexia [None]
  - Chills [None]
